FAERS Safety Report 5253740-9 (Version None)
Quarter: 2007Q1

REPORT INFORMATION
  Report Type: 
  Country: None (occurrence: None)
  Receive Date: 20070227
  Receipt Date: 20070221
  Transmission Date: 20070707
  Serious: Yes (Other)
  Sender: FDA-Public Use
  Company Number: S07-USA-00823-01

PATIENT
  Age: 41 Year
  Sex: Male

DRUGS (1)
  1. LEXAPRO [Suspect]
     Indication: DEPRESSION
     Dates: start: 20061201

REACTIONS (2)
  - DRUG SCREEN POSITIVE [None]
  - LOSS OF EMPLOYMENT [None]
